FAERS Safety Report 9922693 (Version 2)
Quarter: 2014Q1

REPORT INFORMATION
  Report Type: Spontaneous
  Country: US (occurrence: US)
  Receive Date: 20140225
  Receipt Date: 20140225
  Transmission Date: 20141002
  Serious: No
  Sender: FDA-Public Use
  Company Number: US-MYLANLABS-2013S1009004

PATIENT
  Sex: Female
  Weight: 58.97 kg

DRUGS (4)
  1. METOPROLOL TARTRATE TABLETS, USP [Suspect]
     Indication: HEART RATE INCREASED
     Route: 048
     Dates: start: 2010
  2. METOPROLOL TARTRATE TABLETS, USP [Suspect]
     Indication: OFF LABEL USE
     Route: 048
     Dates: start: 2010
  3. SULFAMETHOXAZOLE [Concomitant]
     Indication: ACNE
  4. MVI [Concomitant]

REACTIONS (2)
  - Therapeutic response unexpected [Not Recovered/Not Resolved]
  - No adverse event [Not Recovered/Not Resolved]
